FAERS Safety Report 11514192 (Version 1)
Quarter: 2015Q3

REPORT INFORMATION
  Report Type: Spontaneous
  Country: US (occurrence: US)
  Receive Date: 20150903
  Receipt Date: 20150903
  Transmission Date: 20151125
  Serious: No
  Sender: FDA-Public Use
  Company Number: US-ELI_LILLY_AND_COMPANY-US201209007933

PATIENT
  Age: 65 Year
  Sex: Female

DRUGS (16)
  1. METOPROLOL [Concomitant]
     Active Substance: METOPROLOL
  2. HYDROCODONE [Concomitant]
     Active Substance: HYDROCODONE
  3. CYMBALTA [Suspect]
     Active Substance: DULOXETINE HYDROCHLORIDE
     Dosage: 60 MG, QOD
  4. VITAMIN B12 [Concomitant]
     Active Substance: CYANOCOBALAMIN
  5. CALCIUM [Concomitant]
     Active Substance: CALCIUM
  6. VITAMIN C [Concomitant]
     Active Substance: ASCORBIC ACID
  7. MELOXICAM. [Concomitant]
     Active Substance: MELOXICAM
  8. ZOLPIDEM [Concomitant]
     Active Substance: ZOLPIDEM\ZOLPIDEM TARTRATE
  9. CYMBALTA [Suspect]
     Active Substance: DULOXETINE HYDROCHLORIDE
     Dosage: 60 MG, UNK
  10. VITAMIN D3 [Concomitant]
     Active Substance: CHOLECALCIFEROL
  11. CYMBALTA [Suspect]
     Active Substance: DULOXETINE HYDROCHLORIDE
     Indication: DEPRESSION
     Dosage: 60 MG, QD
     Dates: start: 201111
  12. GARLIC. [Concomitant]
     Active Substance: GARLIC
  13. MECLIZINE [Concomitant]
     Active Substance: MECLIZINE\MECLIZINE HYDROCHLORIDE
  14. VITAMIN E [Concomitant]
     Active Substance: .ALPHA.-TOCOPHEROL
  15. CLONAZEPAM. [Concomitant]
     Active Substance: CLONAZEPAM
  16. FISH OIL [Concomitant]
     Active Substance: FISH OIL

REACTIONS (3)
  - Sacroiliitis [Recovered/Resolved]
  - Hyperhidrosis [Unknown]
  - Dry mouth [Unknown]
